FAERS Safety Report 6958776-5 (Version None)
Quarter: 2010Q3

REPORT INFORMATION
  Report Type: 
  Country: None (occurrence: None)
  Receive Date: 20100831
  Receipt Date: 20100819
  Transmission Date: 20110219
  Serious: Yes (Hospitalization, Other)
  Sender: FDA-Public Use
  Company Number: PHHY2010JP48077

PATIENT
  Sex: Male

DRUGS (15)
  1. FAMVIR [Suspect]
     Indication: HERPES ZOSTER
     Dosage: 250 MG EVERY OTHER DAY
     Route: 048
     Dates: start: 20100712, end: 20100714
  2. ALLOPURINOL [Concomitant]
     Dosage: UNK
  3. CALCIUM POLYSTYRENE SULFONATE [Concomitant]
     Dosage: UNK
  4. DILTIAZEM HYDROCHLORIDE [Concomitant]
     Dosage: UNK
  5. CANDESARTAN CILEXETIL [Concomitant]
     Dosage: UNK
  6. TRICHLORMETHIAZIDE [Concomitant]
     Dosage: UNK
  7. NIFEDIPINE [Concomitant]
     Dosage: UNK
  8. ASPIRIN [Concomitant]
     Dosage: UNK
  9. OMEPRAZOLE [Concomitant]
     Dosage: UNK
  10. PRAVASTATIN SODIUM [Concomitant]
     Dosage: UNK
  11. WARFARIN POTASSIUM [Concomitant]
     Dosage: UNK
  12. NICORANDIL [Concomitant]
     Dosage: UNK
  13. FUROSEMIDE [Concomitant]
     Dosage: UNK
  14. OXYTETRACYCLINE HYDROCHLORIDE [Concomitant]
     Dosage: UNK
     Dates: start: 20100712
  15. CODEINE PHOSPHATE [Concomitant]
     Dosage: UNK
     Dates: start: 20100712

REACTIONS (4)
  - BLOOD PRESSURE DIASTOLIC DECREASED [None]
  - OLIGURIA [None]
  - RENAL FAILURE ACUTE [None]
  - RENAL IMPAIRMENT [None]
